FAERS Safety Report 22643411 (Version 2)
Quarter: 2023Q2

REPORT INFORMATION
  Report Type: Report from Study
  Country: US (occurrence: US)
  Receive Date: 20230627
  Receipt Date: 20230628
  Transmission Date: 20230722
  Serious: Yes (Other)
  Sender: FDA-Public Use
  Company Number: US-ABBVIE-5304666

PATIENT
  Sex: Female
  Weight: 63.956 kg

DRUGS (1)
  1. CREON [Suspect]
     Active Substance: PANCRELIPASE AMYLASE\PANCRELIPASE LIPASE\PANCRELIPASE PROTEASE
     Indication: Dyspepsia
     Dosage: UNKNOWN
     Route: 048
     Dates: start: 2020, end: 2021

REACTIONS (6)
  - Pancreatic carcinoma [Unknown]
  - Steatorrhoea [Not Recovered/Not Resolved]
  - Off label use [Not Recovered/Not Resolved]
  - Condition aggravated [Not Recovered/Not Resolved]
  - Flatulence [Not Recovered/Not Resolved]
  - Abdominal distension [Not Recovered/Not Resolved]

NARRATIVE: CASE EVENT DATE: 20200101
